FAERS Safety Report 18086957 (Version 3)
Quarter: 2020Q3

REPORT INFORMATION
  Report Type: Spontaneous
  Country: US (occurrence: US)
  Receive Date: 20200729
  Receipt Date: 20200901
  Transmission Date: 20201103
  Serious: No
  Sender: FDA-Public Use
  Company Number: US-PFIZER INC-2020285535

PATIENT
  Age: 65 Year
  Sex: Female
  Weight: 58.97 kg

DRUGS (1)
  1. PREMARIN [Suspect]
     Active Substance: ESTROGENS, CONJUGATED
     Indication: VULVOVAGINAL DISCOMFORT
     Dosage: 0.625 MG/G, WEEKLY (0.625 MG/GRAM TUBE, PEA SIZE AMOUNT ONCE A WEEK ON SATURDAY EVENINGS)
     Dates: start: 2016

REACTIONS (5)
  - Vulvovaginal discomfort [Unknown]
  - Off label use [Unknown]
  - Product complaint [Unknown]
  - Dizziness [Not Recovered/Not Resolved]
  - Feeling abnormal [Not Recovered/Not Resolved]

NARRATIVE: CASE EVENT DATE: 2016
